FAERS Safety Report 12759961 (Version 1)
Quarter: 2016Q3

REPORT INFORMATION
  Report Type: Report from Study
  Country: US (occurrence: US)
  Receive Date: 20160919
  Receipt Date: 20160919
  Transmission Date: 20161109
  Serious: No
  Sender: FDA-Public Use
  Company Number: PHEH2016US023737

PATIENT
  Sex: Male

DRUGS (4)
  1. EXTAVIA [Suspect]
     Active Substance: INTERFERON BETA-1B
     Dosage: WEEK 5-6, 0.1875 MG, 0.75 ML
     Route: 058
  2. EXTAVIA [Suspect]
     Active Substance: INTERFERON BETA-1B
     Dosage: WEEK 3-4, 0.125 MG, 0.5 ML
     Route: 058
  3. EXTAVIA [Suspect]
     Active Substance: INTERFERON BETA-1B
     Indication: MULTIPLE SCLEROSIS
     Dosage: WEEK 1-2, 0.0625 MG, QOD, 0.25 ML
     Route: 058
     Dates: start: 20160901
  4. EXTAVIA [Suspect]
     Active Substance: INTERFERON BETA-1B
     Dosage: WEEK 7+, 0.25 MG, 1 ML
     Route: 058

REACTIONS (1)
  - Paraesthesia [Unknown]
